FAERS Safety Report 7789552-1 (Version None)
Quarter: 2011Q3

REPORT INFORMATION
  Report Type: 
  Country: None (occurrence: None)
  Receive Date: 20110930
  Receipt Date: 20110920
  Transmission Date: 20111222
  Serious: No
  Sender: FDA-Public Use
  Company Number: US-B.I. PHARMACEUTICALS,INC./RIDGEFIELD-2011-BP-22479BP

PATIENT
  Sex: Male

DRUGS (5)
  1. BENAZEPRIL HYDROCHLORIDE [Concomitant]
     Indication: HYPERTENSION
  2. DIGOXIN [Concomitant]
  3. METFORMIN HCL [Concomitant]
     Indication: TYPE 2 DIABETES MELLITUS
  4. PRADAXA [Suspect]
     Indication: ATRIAL FIBRILLATION
     Dosage: 300 MG
     Route: 048
     Dates: start: 20110501, end: 20110919
  5. METOPROLOL [Concomitant]
     Indication: HYPERTENSION

REACTIONS (5)
  - MYALGIA [None]
  - DIARRHOEA [None]
  - FLATULENCE [None]
  - DYSPEPSIA [None]
  - ERUCTATION [None]
